FAERS Safety Report 18832305 (Version 1)
Quarter: 2021Q1

REPORT INFORMATION
  Report Type: Spontaneous
  Country: FR (occurrence: FR)
  Receive Date: 20210203
  Receipt Date: 20210203
  Transmission Date: 20210419
  Serious: Yes (Death, Hospitalization, Other)
  Sender: FDA-Public Use
  Company Number: FR-AUROBINDO-AUR-APL-2016-01093

PATIENT
  Age: 19 Year
  Sex: Female

DRUGS (3)
  1. ASPIRIN. [Suspect]
     Active Substance: ASPIRIN
     Indication: PRODUCT USED FOR UNKNOWN INDICATION
     Dosage: UNK
     Route: 065
  2. PARACETAMOL TABLET [Suspect]
     Active Substance: ACETAMINOPHEN
     Indication: PRODUCT USED FOR UNKNOWN INDICATION
     Dosage: UNK
     Route: 065
  3. TRIMEBUTINE TABLET [Suspect]
     Active Substance: TRIMEBUTINE
     Indication: PRODUCT USED FOR UNKNOWN INDICATION
     Dosage: 120 TABLETS OF 200MG
     Route: 065

REACTIONS (13)
  - Condition aggravated [Fatal]
  - Pneumonia aspiration [Unknown]
  - Hypoxia [Unknown]
  - Ischaemia [Unknown]
  - Bradycardia [Unknown]
  - Pyramidal tract syndrome [Unknown]
  - Nervous system disorder [Unknown]
  - Toxicity to various agents [Unknown]
  - Cardio-respiratory arrest [Unknown]
  - Intentional overdose [Unknown]
  - Seizure [Unknown]
  - Ventricular fibrillation [Unknown]
  - Miosis [Unknown]
